FAERS Safety Report 4409115-5 (Version None)
Quarter: 2004Q3

REPORT INFORMATION
  Report Type: 
  Country: None (occurrence: None)
  Receive Date: 20040727
  Receipt Date: 20040721
  Transmission Date: 20050211
  Serious: Yes (Congenital Anomaly)
  Sender: FDA-Public Use
  Company Number: NL-MERCK-0407NLD00020

PATIENT
  Age: 0 Day
  Weight: 3 kg

DRUGS (2)
  1. FLUVOXAMINE MALEATE [Suspect]
     Indication: DEPRESSION
  2. ALDOMET [Suspect]
     Indication: HYPERTENSION

REACTIONS (3)
  - DRUG EXPOSURE DURING PREGNANCY [None]
  - PREGNANCY [None]
  - SMALL FOR DATES BABY [None]
